FAERS Safety Report 9626194 (Version 1)
Quarter: 2013Q4

REPORT INFORMATION
  Report Type: Spontaneous
  Country: US (occurrence: None)
  Receive Date: 20131007
  Receipt Date: 20131007
  Transmission Date: 20140711
  Serious: Yes (Hospitalization)
  Sender: FDA-Public Use
  Company Number: 2013038287

PATIENT
  Sex: Female

DRUGS (1)
  1. ZEMAIRA (ALPHA-1 PROTEINASE INHIBITOR (HUMAN)) [Suspect]
     Route: 042

REACTIONS (1)
  - Lung disorder [None]
